FAERS Safety Report 8405161-5 (Version None)
Quarter: 2012Q1

REPORT INFORMATION
  Report Type: 
  Country: None (occurrence: None)
  Receive Date: 20120323
  Receipt Date: 20110502
  Transmission Date: 20120608
  Serious: Yes (Other)
  Sender: FDA-Public Use
  Company Number: 163-21880-11050209

PATIENT
  Age: 82 Year
  Sex: Male
  Weight: 73.3 kg

DRUGS (7)
  1. TERAZOSIN (TERAZOSIN)(UNKNOWN) [Concomitant]
  2. AMLODIPINE [Concomitant]
  3. REVLIMID [Suspect]
     Indication: MYELODYSPLASTIC SYNDROME
     Dosage: 25 MG, DAILY FOR 21 DAYS AND 7 DAYS OFF, PO, 15 MG, DAILY FOR 21 DAYS AND 7 DAYS OFF, PO
     Route: 048
     Dates: start: 20091101, end: 20100801
  4. REVLIMID [Suspect]
     Indication: MYELODYSPLASTIC SYNDROME
     Dosage: 25 MG, DAILY FOR 21 DAYS AND 7 DAYS OFF, PO, 15 MG, DAILY FOR 21 DAYS AND 7 DAYS OFF, PO
     Route: 048
     Dates: start: 20100801, end: 20101001
  5. ASPIRIN [Concomitant]
  6. GABAPENTIN [Concomitant]
  7. OXYBUTYNIN(OXYBUTYNIN)(UNKNOWN) [Concomitant]

REACTIONS (2)
  - HAEMOGLOBIN DECREASED [None]
  - PLATELET COUNT DECREASED [None]
